FAERS Safety Report 18142532 (Version 3)
Quarter: 2020Q3

REPORT INFORMATION
  Report Type: Spontaneous
  Country: DE (occurrence: DE)
  Receive Date: 20200813
  Receipt Date: 20200922
  Transmission Date: 20201103
  Serious: Yes (Other)
  Sender: FDA-Public Use
  Company Number: DE-AUROBINDO-AUR-APL-2020-038631

PATIENT
  Age: 20 Year
  Sex: Female

DRUGS (1)
  1. LAMOTRIGINE AUROBINDO TABLETS 100MG [Suspect]
     Active Substance: LAMOTRIGINE
     Indication: EPILEPSY
     Dosage: 200 MILLIGRAM, TWO TIMES A DAY(2?0?2)
     Route: 065
     Dates: start: 202005

REACTIONS (6)
  - Generalised tonic-clonic seizure [Unknown]
  - Altered state of consciousness [Unknown]
  - Epileptic aura [Unknown]
  - Petit mal epilepsy [Unknown]
  - Myoclonus [Unknown]
  - Product lot number issue [Unknown]

NARRATIVE: CASE EVENT DATE: 202005
